FAERS Safety Report 10875838 (Version 1)
Quarter: 2015Q1

REPORT INFORMATION
  Report Type: Spontaneous
  Country: US (occurrence: US)
  Receive Date: 20150227
  Receipt Date: 20150227
  Transmission Date: 20150721
  Serious: Yes (Hospitalization)
  Sender: FDA-Public Use
  Company Number: US-AMGEN-USASP2014006783

PATIENT
  Age: 52 Year
  Sex: Female
  Weight: 52.15 kg

DRUGS (1)
  1. ENBREL [Suspect]
     Active Substance: ETANERCEPT
     Indication: RHEUMATOID ARTHRITIS
     Dosage: 50 MG, QWK
     Route: 058
     Dates: start: 2005

REACTIONS (7)
  - Knee arthroplasty [Recovered/Resolved]
  - Hypoaesthesia [Unknown]
  - Arthropathy [Recovered/Resolved]
  - Induration [Unknown]
  - Post procedural infection [Recovered/Resolved]
  - Erythema [Unknown]
  - Arthritis infective [Recovered/Resolved]

NARRATIVE: CASE EVENT DATE: 2012
